FAERS Safety Report 6578079-0 (Version None)
Quarter: 2010Q1

REPORT INFORMATION
  Report Type: 
  Country: None (occurrence: None)
  Receive Date: 20100211
  Receipt Date: 20100204
  Transmission Date: 20100710
  Serious: Yes (Other)
  Sender: FDA-Public Use
  Company Number: US-ABBOTT-10P-163-0624582-00

PATIENT
  Sex: Female
  Weight: 88.53 kg

DRUGS (5)
  1. SIMCOR [Suspect]
     Indication: BLOOD CHOLESTEROL INCREASED
     Dosage: 500/20
     Dates: start: 20090601, end: 20091201
  2. SIMCOR [Suspect]
     Dates: start: 20100101
  3. KEPPRA [Concomitant]
     Indication: CONVULSION PROPHYLAXIS
     Dates: start: 20070101
  4. DIOVAN [Concomitant]
     Indication: HYPERTENSION
     Dosage: 160/20
     Dates: start: 20070101
  5. ASPIRIN [Concomitant]
     Indication: DRUG USE FOR UNKNOWN INDICATION

REACTIONS (1)
  - BREAST CANCER [None]
